FAERS Safety Report 24270851 (Version 2)
Quarter: 2024Q4

REPORT INFORMATION
  Report Type: Report from Study
  Country: US (occurrence: US)
  Receive Date: 20240831
  Receipt Date: 20241028
  Transmission Date: 20250115
  Serious: Yes (Other)
  Sender: ABBVIE
  Company Number: US-ABBVIE-5859865

PATIENT
  Age: 49 Year
  Sex: Female

DRUGS (3)
  1. RINVOQ [Suspect]
     Active Substance: UPADACITINIB
     Indication: Colitis ulcerative
     Route: 048
     Dates: start: 20230825
  2. VITAMIN D [Concomitant]
     Active Substance: VITAMIN D NOS
     Indication: Blood iron decreased
  3. FLUOXETINE [Concomitant]
     Active Substance: FLUOXETINE HYDROCHLORIDE
     Indication: Depression

REACTIONS (7)
  - Blood iron decreased [Not Recovered/Not Resolved]
  - Depression [Recovering/Resolving]
  - Arthralgia [Not Recovered/Not Resolved]
  - Uveitis [Recovered/Resolved]
  - Poor quality sleep [Not Recovered/Not Resolved]
  - Rheumatoid nodule [Not Recovered/Not Resolved]
  - Dry mouth [Not Recovered/Not Resolved]

NARRATIVE: CASE EVENT DATE: 20240401
